FAERS Safety Report 22091507 (Version 1)
Quarter: 2023Q1

REPORT INFORMATION
  Report Type: Spontaneous
  Country: US (occurrence: US)
  Receive Date: 20230314
  Receipt Date: 20230314
  Transmission Date: 20230417
  Serious: No
  Sender: FDA-Public Use
  Company Number: US-THE RITEDOSE CORPORATION-2022RIT000196

PATIENT

DRUGS (2)
  1. IPRATROPIUM BROMIDE [Suspect]
     Active Substance: IPRATROPIUM BROMIDE
     Indication: Pulmonary fibrosis
     Dosage: 1 VIAL AS NEEDED
     Route: 055
     Dates: start: 2022, end: 202207
  2. IPRATROPIUM BROMIDE [Suspect]
     Active Substance: IPRATROPIUM BROMIDE
     Indication: Interstitial lung disease

REACTIONS (6)
  - Glossitis [Unknown]
  - Stomatitis [Unknown]
  - Oropharyngeal pain [Unknown]
  - Cough [Unknown]
  - Product quality issue [Unknown]
  - Off label use [Unknown]

NARRATIVE: CASE EVENT DATE: 20220101
